FAERS Safety Report 10224212 (Version 1)
Quarter: 2014Q2

REPORT INFORMATION
  Report Type: Spontaneous
  Country: US (occurrence: None)
  Receive Date: 20140605
  Receipt Date: 20140605
  Transmission Date: 20141212
  Serious: Yes (Death)
  Sender: FDA-Public Use
  Company Number: 1713747-2014-99983

PATIENT
  Sex: Male

DRUGS (2)
  1. DELFLEX PERITIONEAL DIALYSIS SOLUTIONS WITH DEXTROSE [Suspect]
     Indication: PERITONEAL DIALYSIS
  2. DELFLEX PERITIONEAL DIALYSIS SOLUTIONS WITH DEXTROSE [Suspect]
     Indication: RENAL FAILURE CHRONIC

REACTIONS (5)
  - Nausea [None]
  - Vomiting [None]
  - Aspiration [None]
  - Pneumonia [None]
  - Cardiac arrest [None]
